FAERS Safety Report 14739543 (Version 3)
Quarter: 2018Q2

REPORT INFORMATION
  Report Type: Report from Study
  Country: US (occurrence: US)
  Receive Date: 20180410
  Receipt Date: 20180516
  Transmission Date: 20180711
  Serious: No
  Sender: FDA-Public Use
  Company Number: US-AMGEN-USASL2018045881

PATIENT
  Age: 87 Year
  Sex: Female
  Weight: 55.33 kg

DRUGS (3)
  1. ENBREL [Suspect]
     Active Substance: ETANERCEPT
     Dosage: 50 MG, QWK
     Route: 065
  2. ENBREL [Suspect]
     Active Substance: ETANERCEPT
     Indication: RHEUMATOID ARTHRITIS
     Dosage: 50 MG, QWK
     Route: 065
  3. PLAQUENIL [Suspect]
     Active Substance: HYDROXYCHLOROQUINE SULFATE
     Indication: RHEUMATOID ARTHRITIS
     Dosage: 400 MG, QD (200 MG 2 TABLETS)
     Route: 048
     Dates: start: 20180321, end: 20180328

REACTIONS (4)
  - Fatigue [Unknown]
  - Chromaturia [Unknown]
  - Drug dispensing error [Unknown]
  - Vomiting [Unknown]

NARRATIVE: CASE EVENT DATE: 201803
